FAERS Safety Report 5793401-0 (Version None)
Quarter: 2008Q2

REPORT INFORMATION
  Report Type: 
  Country: None (occurrence: None)
  Receive Date: 20080627
  Receipt Date: 20080616
  Transmission Date: 20081010
  Serious: Yes (Other)
  Sender: FDA-Public Use
  Company Number: CA-JNJFOC-20080505026

PATIENT
  Sex: Male
  Weight: 64.5 kg

DRUGS (8)
  1. PREZISTA [Suspect]
     Indication: HIV INFECTION
  2. LIPITOR [Concomitant]
     Indication: HYPERLIPIDAEMIA
  3. NIASPAM [Concomitant]
     Indication: HYPERLIPIDAEMIA
  4. COZAAR [Concomitant]
     Indication: HYPERTENSION
  5. HYDROCHLOROTHIAZIDE [Concomitant]
     Indication: HYPERTENSION
  6. MONITAN [Concomitant]
     Indication: HYPERTENSION
  7. EFFEXOR [Concomitant]
     Indication: DEPRESSION
  8. FAMVIR [Concomitant]
     Indication: ANTIVIRAL PROPHYLAXIS

REACTIONS (1)
  - HEPATIC FIBROSIS [None]
